FAERS Safety Report 6992027-0 (Version None)
Quarter: 2010Q3

REPORT INFORMATION
  Report Type: 
  Country: None (occurrence: None)
  Receive Date: 20100917
  Receipt Date: 20100906
  Transmission Date: 20110219
  Serious: Yes (Other)
  Sender: FDA-Public Use
  Company Number: US-PFIZER INC-2010114691

PATIENT
  Age: 87 Year
  Sex: Male

DRUGS (2)
  1. SERTRALINE HYDROCHLORIDE [Suspect]
     Indication: POST-TRAUMATIC STRESS DISORDER
     Dosage: UNK
     Route: 065
     Dates: start: 19980101
  2. SERTRALINE HYDROCHLORIDE [Suspect]
     Indication: NIGHTMARE

REACTIONS (2)
  - ABNORMAL BEHAVIOUR [None]
  - SLEEP DISORDER [None]
